FAERS Safety Report 6306068-X (Version None)
Quarter: 2009Q3

REPORT INFORMATION
  Report Type: 
  Country: None (occurrence: None)
  Receive Date: 20090812
  Receipt Date: 20090730
  Transmission Date: 20100115
  Serious: Yes (Other)
  Sender: FDA-Public Use
  Company Number: US-JNJFOC-20090800128

PATIENT
  Age: 50 Year
  Sex: Female
  Weight: 56.7 kg

DRUGS (8)
  1. NUCYNTA [Suspect]
     Indication: PAIN
     Route: 048
     Dates: start: 20090727, end: 20090729
  2. ASCORBIC ACID [Concomitant]
     Indication: NUTRITIONAL SUPPORT
     Dosage: ^3-4,000 MG PER DAY^
     Route: 048
  3. CALCIUM AND VITAMIN D [Concomitant]
     Indication: NUTRITIONAL SUPPORT
     Route: 048
  4. RESVERATROL [Concomitant]
     Indication: NUTRITIONAL SUPPORT
     Route: 048
  5. LOVAZA [Concomitant]
     Indication: NUTRITIONAL SUPPORT
     Route: 048
  6. DHEA [Concomitant]
     Indication: NUTRITIONAL SUPPORT
     Route: 048
  7. NATURAL ESTROGEN [Concomitant]
     Indication: DRUG USE FOR UNKNOWN INDICATION
     Route: 061
  8. NATURAL PROGESTERONE CREAM [Concomitant]
     Indication: DRUG USE FOR UNKNOWN INDICATION
     Route: 061

REACTIONS (12)
  - ABDOMINAL DISTENSION [None]
  - AGITATION [None]
  - CHEST DISCOMFORT [None]
  - CONFUSIONAL STATE [None]
  - DRY MOUTH [None]
  - DYSPNOEA [None]
  - FEELING OF BODY TEMPERATURE CHANGE [None]
  - FLUID RETENTION [None]
  - HOT FLUSH [None]
  - MENTAL IMPAIRMENT [None]
  - POLLAKIURIA [None]
  - PULMONARY OEDEMA [None]
